FAERS Safety Report 4935546-0 (Version None)
Quarter: 2006Q1

REPORT INFORMATION
  Report Type: 
  Country: None (occurrence: None)
  Receive Date: 20060302
  Receipt Date: 20060214
  Transmission Date: 20060701
  Serious: Yes (Hospitalization)
  Sender: FDA-Public Use
  Company Number: US200601002648

PATIENT
  Age: 70 Year
  Sex: Female

DRUGS (7)
  1. FORTEO [Suspect]
     Indication: OSTEOPOROSIS
     Dosage: 20 UG, DAILY (1/D), UNK
     Dates: start: 20050101, end: 20050701
  2. FORTEO [Suspect]
     Indication: OSTEOPOROSIS
     Dosage: 20 UG, DAILY (1/D), UNK
     Dates: start: 20060113, end: 20060122
  3. FORTEO [Concomitant]
  4. AREDIA     /SWE/(PAMIDRONATE DISODIUM) [Concomitant]
  5. AVAPRO [Concomitant]
  6. SYNTHROID [Concomitant]
  7. EFFEXOR [Concomitant]

REACTIONS (17)
  - CONDITION AGGRAVATED [None]
  - COUGH [None]
  - DIZZINESS [None]
  - FEELING HOT [None]
  - GOUT [None]
  - MOVEMENT DISORDER [None]
  - MUSCLE DISORDER [None]
  - MUSCULAR WEAKNESS [None]
  - MUSCULOSKELETAL STIFFNESS [None]
  - OEDEMA PERIPHERAL [None]
  - PERIARTHRITIS [None]
  - PHARMACEUTICAL PRODUCT COMPLAINT [None]
  - POLYMYALGIA RHEUMATICA [None]
  - PRURITUS [None]
  - RHEUMATOID ARTHRITIS [None]
  - SYNOVITIS [None]
  - TEMPORAL ARTERITIS [None]
